FAERS Safety Report 17029997 (Version 1)
Quarter: 2019Q4

REPORT INFORMATION
  Report Type: Spontaneous
  Country: US (occurrence: US)
  Receive Date: 20191114
  Receipt Date: 20191114
  Transmission Date: 20200122
  Serious: No
  Sender: FDA-Public Use
  Company Number: NVSC2019US034434

PATIENT
  Sex: Male

DRUGS (1)
  1. VEREGEN [Suspect]
     Active Substance: SINECATECHINS
     Indication: ANOGENITAL WARTS
     Dosage: UNK
     Route: 065

REACTIONS (1)
  - Drug ineffective [Unknown]
